FAERS Safety Report 8229160-1 (Version None)
Quarter: 2012Q1

REPORT INFORMATION
  Report Type: 
  Country: None (occurrence: None)
  Receive Date: 20120322
  Receipt Date: 20120308
  Transmission Date: 20120608
  Serious: Yes (Other)
  Sender: FDA-Public Use
  Company Number: FR-CELGENEUS-056-21880-12022314

PATIENT
  Sex: Female
  Weight: 67 kg

DRUGS (6)
  1. ADRIAMYCIN PFS [Concomitant]
     Indication: LYMPHOMA
     Route: 065
     Dates: start: 20120206
  2. RITUXIMAB [Concomitant]
     Indication: LYMPHOMA
     Route: 065
     Dates: start: 20120206
  3. VINCRISTINE [Concomitant]
     Indication: LYMPHOMA
     Route: 065
     Dates: start: 20120206
  4. CYCLOPHOSPHAMIDE [Concomitant]
     Indication: LYMPHOMA
     Route: 065
     Dates: start: 20120206
  5. PREDNISONE TAB [Concomitant]
     Indication: LYMPHOMA
     Route: 065
     Dates: start: 20120206
  6. REVLIMID [Suspect]
     Indication: B-CELL LYMPHOMA
     Dosage: 25 MILLIGRAM
     Route: 048
     Dates: start: 20120206, end: 20120217

REACTIONS (4)
  - EYELID OEDEMA [None]
  - OCULAR HYPERAEMIA [None]
  - RASH ERYTHEMATOUS [None]
  - EYE PAIN [None]
